FAERS Safety Report 5805908-8 (Version None)
Quarter: 2008Q3

REPORT INFORMATION
  Report Type: 
  Country: None (occurrence: None)
  Receive Date: 20080710
  Receipt Date: 20080702
  Transmission Date: 20090109
  Serious: Yes (Hospitalization)
  Sender: FDA-Public Use
  Company Number: AT-AMGEN-UK291324

PATIENT
  Age: 82 Year
  Sex: Female

DRUGS (10)
  1. ARANESP [Suspect]
     Indication: RENAL FAILURE CHRONIC
     Route: 058
  2. MARCUMAR [Concomitant]
     Route: 048
  3. LEVOTHYROXINE SODIUM [Concomitant]
  4. ETALPHA [Concomitant]
  5. PANTOPRAZOLE SODIUM [Concomitant]
  6. UROSIN [Concomitant]
  7. ESCITALOPRAM [Concomitant]
  8. LASIX [Concomitant]
  9. FLUNITRAZEPAM [Concomitant]
  10. DIGIMERCK [Concomitant]

REACTIONS (1)
  - ISCHAEMIC CEREBRAL INFARCTION [None]
